FAERS Safety Report 25238343 (Version 1)
Quarter: 2025Q2

REPORT INFORMATION
  Report Type: Spontaneous
  Country: US (occurrence: US)
  Receive Date: 20250425
  Receipt Date: 20250425
  Transmission Date: 20250716
  Serious: Yes (Other)
  Sender: BRISTOL-MYERS SQUIBB COMPANY
  Company Number: US-BRISTOL-MYERS SQUIBB COMPANY-2025-059375

PATIENT
  Age: 62 Year
  Sex: Female

DRUGS (1)
  1. POMALYST [Suspect]
     Active Substance: POMALIDOMIDE
     Indication: Plasma cell myeloma
     Dosage: FREQUENCY: 1 TIME A DAY FOR 21 DAYS ON THEN 7 DAYS OFF
     Route: 048
     Dates: start: 202503

REACTIONS (3)
  - Neuropathy peripheral [Not Recovered/Not Resolved]
  - Hypoparathyroidism [Unknown]
  - Electrolyte imbalance [Unknown]
